FAERS Safety Report 14601793 (Version 2)
Quarter: 2018Q1

REPORT INFORMATION
  Report Type: Spontaneous
  Country: JP (occurrence: JP)
  Receive Date: 20180306
  Receipt Date: 20180308
  Transmission Date: 20180509
  Serious: Yes (Other)
  Sender: FDA-Public Use
  Company Number: JP-ROCHE-2081170

PATIENT
  Sex: Male

DRUGS (2)
  1. LUCENTIS [Suspect]
     Active Substance: RANIBIZUMAB
     Indication: DIABETIC RETINAL OEDEMA
     Route: 031
  2. BEVACIZUMAB. [Concomitant]
     Active Substance: BEVACIZUMAB
     Indication: DIABETIC RETINAL OEDEMA
     Route: 065

REACTIONS (9)
  - Retinal aneurysm [Unknown]
  - Concomitant disease progression [Unknown]
  - Renal impairment [Unknown]
  - Visual acuity reduced [Unknown]
  - Diabetic retinal oedema [Unknown]
  - Oedema peripheral [Unknown]
  - Generalised oedema [Unknown]
  - Retinal exudates [Unknown]
  - Cataract [Unknown]
